FAERS Safety Report 7656020-7 (Version None)
Quarter: 2011Q3

REPORT INFORMATION
  Report Type: 
  Country: None (occurrence: None)
  Receive Date: 20110804
  Receipt Date: 20110722
  Transmission Date: 20111222
  Serious: Yes (Death, Congenital Anomaly)
  Sender: FDA-Public Use
  Company Number: JP-ROCHE-781431

PATIENT
  Sex: Female
  Weight: 45 kg

DRUGS (7)
  1. ETHAMBUTOL HYDROCHLORIDE [Concomitant]
  2. ALENDRONATE SODIUM [Concomitant]
     Route: 048
     Dates: start: 20071019
  3. ACTEMRA [Suspect]
     Indication: RHEUMATOID ARTHRITIS
     Route: 041
     Dates: start: 20110422, end: 20110422
  4. ENBREL [Suspect]
     Indication: RHEUMATOID ARTHRITIS
     Route: 058
     Dates: start: 20101018, end: 20110422
  5. ACECOL [Concomitant]
     Route: 050
  6. AMLODIPINE [Concomitant]
     Route: 050
  7. ALENDRONATE SODIUM [Concomitant]
     Route: 048
     Dates: end: 20071019

REACTIONS (3)
  - SEPTIC SHOCK [None]
  - DISSEMINATED INTRAVASCULAR COAGULATION [None]
  - INFECTION [None]
